FAERS Safety Report 17532899 (Version 2)
Quarter: 2020Q3

REPORT INFORMATION
  Report Type: Spontaneous
  Country: US (occurrence: US)
  Receive Date: 20200312
  Receipt Date: 20200723
  Transmission Date: 20201102
  Serious: Yes (Hospitalization, Other)
  Sender: FDA-Public Use
  Company Number: US-ASTRAZENECA-2020SE34884

PATIENT
  Age: 25041 Day
  Sex: Female
  Weight: 134.3 kg

DRUGS (54)
  1. NAPROXEN. [Concomitant]
     Active Substance: NAPROXEN
     Dates: start: 20090119
  2. SYMBICORT [Concomitant]
     Active Substance: BUDESONIDE\FORMOTEROL FUMARATE DIHYDRATE
     Dates: start: 20131001
  3. LATANOPROST. [Concomitant]
     Active Substance: LATANOPROST
     Dates: start: 20141031
  4. CINNAMON. [Concomitant]
     Active Substance: CINNAMON
     Dates: start: 20101003, end: 20110119
  5. PREVACID [Suspect]
     Active Substance: LANSOPRAZOLE
     Route: 065
     Dates: start: 2002, end: 2018
  6. ZYRTEC [Concomitant]
     Active Substance: CETIRIZINE HYDROCHLORIDE
     Dates: end: 20120227
  7. ALBUTEROL. [Concomitant]
     Active Substance: ALBUTEROL
     Dates: start: 20090119
  8. ASPIRIN. [Concomitant]
     Active Substance: ASPIRIN
  9. NEXIUM [Suspect]
     Active Substance: ESOMEPRAZOLE MAGNESIUM
     Route: 048
     Dates: start: 2002, end: 2018
  10. NEXIUM [Suspect]
     Active Substance: ESOMEPRAZOLE MAGNESIUM
     Dosage: GENERIC
     Route: 048
     Dates: start: 20110316, end: 20120227
  11. NEXIUM [Suspect]
     Active Substance: ESOMEPRAZOLE MAGNESIUM
     Route: 048
     Dates: end: 20120227
  12. DUONEB [Concomitant]
     Active Substance: ALBUTEROL SULFATE\IPRATROPIUM BROMIDE
     Dates: start: 20110617
  13. GLIPIZIDE. [Concomitant]
     Active Substance: GLIPIZIDE
     Dates: start: 20090825
  14. LEXAPRO [Concomitant]
     Active Substance: ESCITALOPRAM OXALATE
  15. METFORMIN [Concomitant]
     Active Substance: METFORMIN HYDROCHLORIDE
  16. TRAMADOL. [Concomitant]
     Active Substance: TRAMADOL
     Dates: start: 20111104
  17. CALCITRIOL. [Concomitant]
     Active Substance: CALCITRIOL
     Dates: start: 20150930
  18. TRIAMCINOLONE [Concomitant]
     Active Substance: TRIAMCINOLONE
     Dates: start: 20090825
  19. OLMESARTAN [Concomitant]
     Active Substance: OLMESARTAN
     Dates: start: 20090825
  20. VITAMIN C [Concomitant]
     Active Substance: ASCORBIC ACID
  21. PREVACID [Suspect]
     Active Substance: LANSOPRAZOLE
     Dosage: GENERIC
     Route: 048
     Dates: start: 20111117, end: 20121116
  22. ALLOPURINOL. [Concomitant]
     Active Substance: ALLOPURINOL
     Dates: start: 20180920
  23. TORSEMIDE. [Concomitant]
     Active Substance: TORSEMIDE
     Dates: start: 20181020
  24. SINGULAIR [Concomitant]
     Active Substance: MONTELUKAST SODIUM
  25. LEVOFLOXACIN. [Concomitant]
     Active Substance: LEVOFLOXACIN
     Dates: start: 20100521
  26. NORTRIPTYLINE [Concomitant]
     Active Substance: NORTRIPTYLINE
     Dates: start: 20121219
  27. ULTRA [Concomitant]
     Active Substance: SULFACETAMIDE SODIUM
     Dates: start: 20121219
  28. AUGMENTIN [Concomitant]
     Active Substance: AMOXICILLIN\CLAVULANATE POTASSIUM
  29. TELMISARTAN. [Concomitant]
     Active Substance: TELMISARTAN
     Dates: start: 20190704
  30. METANX [Concomitant]
     Active Substance: LEVOMEFOLATE CALCIUM\METHYLCOBALAMIN\PYRIDOXAL PHOSPHATE ANHYDROUS
  31. NEXIUM [Suspect]
     Active Substance: ESOMEPRAZOLE MAGNESIUM
     Route: 048
     Dates: start: 20130828
  32. JANUVIA [Concomitant]
     Active Substance: SITAGLIPTIN PHOSPHATE
     Dates: start: 20111207
  33. ALPRAZOLAM. [Concomitant]
     Active Substance: ALPRAZOLAM
     Dates: start: 20090825
  34. CEPHALEXIN. [Concomitant]
     Active Substance: CEPHALEXIN
     Dates: start: 20130927
  35. SPIRONOLACTONE. [Concomitant]
     Active Substance: SPIRONOLACTONE
     Dates: start: 20150312
  36. BENADRYL [Concomitant]
     Active Substance: DIPHENHYDRAMINE HYDROCHLORIDE
     Dates: start: 20101003, end: 20120303
  37. NOVOLOG [Concomitant]
     Active Substance: INSULIN ASPART
     Dates: start: 20111104
  38. LOSARTAN. [Concomitant]
     Active Substance: LOSARTAN
     Dates: start: 20140111
  39. LOVASTATIN. [Concomitant]
     Active Substance: LOVASTATIN
     Dates: start: 20180929
  40. METOLAZONE. [Concomitant]
     Active Substance: METOLAZONE
     Dates: start: 20181020
  41. CLONAZEPAM. [Concomitant]
     Active Substance: CLONAZEPAM
     Dates: start: 20181026
  42. COENZYME Q10 [Concomitant]
     Active Substance: DIETARY SUPPLEMENT\UBIDECARENONE
     Dates: start: 20101003, end: 20110119
  43. NEXIUM [Suspect]
     Active Substance: ESOMEPRAZOLE MAGNESIUM
     Dosage: GENERIC
     Route: 048
     Dates: start: 20090402
  44. TYLENOL [Concomitant]
     Active Substance: ACETAMINOPHEN
     Indication: PAIN
  45. TUMS [Concomitant]
     Active Substance: CALCIUM CARBONATE
     Dates: start: 1970
  46. LANTUS [Concomitant]
     Active Substance: INSULIN GLARGINE
     Dates: start: 20111104
  47. POTASSIUM CHLORIDE. [Concomitant]
     Active Substance: POTASSIUM CHLORIDE
     Dates: start: 20140111
  48. CARTIA [Concomitant]
     Dates: start: 20140111
  49. BUSPIRONE [Concomitant]
     Active Substance: BUSPIRONE HYDROCHLORIDE
     Dates: start: 20140111
  50. PREDNISONE. [Concomitant]
     Active Substance: PREDNISONE
     Dates: start: 20190330
  51. FLOVENT [Concomitant]
     Active Substance: FLUTICASONE PROPIONATE
     Dates: start: 20190108
  52. GABAPENTIN. [Concomitant]
     Active Substance: GABAPENTIN
     Dates: start: 20130323
  53. VITAMIN D2 [Concomitant]
     Active Substance: ERGOCALCIFEROL
     Dates: start: 20160523
  54. PROVENTIL [Concomitant]
     Active Substance: ALBUTEROL

REACTIONS (5)
  - Acute kidney injury [Not Recovered/Not Resolved]
  - Chronic kidney disease-mineral and bone disorder [Unknown]
  - Nephrogenic anaemia [Unknown]
  - Chronic kidney disease [Not Recovered/Not Resolved]
  - Renal failure [Unknown]

NARRATIVE: CASE EVENT DATE: 20150413
